FAERS Safety Report 5615795-9 (Version None)
Quarter: 2008Q1

REPORT INFORMATION
  Report Type: 
  Country: None (occurrence: None)
  Receive Date: 20080206
  Receipt Date: 20080129
  Transmission Date: 20080703
  Serious: Yes (Hospitalization, Disabling)
  Sender: FDA-Public Use
  Company Number: DE-AVENTIS-200810039DE

PATIENT
  Age: 67 Year
  Sex: Female
  Weight: 70 kg

DRUGS (6)
  1. DOCETAXEL [Suspect]
     Route: 041
     Dates: start: 20070216, end: 20070605
  2. VITAMIN B6 [Suspect]
     Indication: PREMEDICATION
     Dosage: DOSE: NOT REPORTED
  3. FORTECORTIN                        /00016001/ [Concomitant]
     Indication: PREMEDICATION
     Dates: start: 20070216, end: 20070605
  4. TAVEGIL                            /00137201/ [Concomitant]
     Indication: PREMEDICATION
     Dates: start: 20070216, end: 20070605
  5. KEVATRIL [Concomitant]
     Indication: PREMEDICATION
     Dates: start: 20070216, end: 20070605
  6. SODIUM CHLORIDE [Concomitant]
     Indication: PREMEDICATION
     Dates: start: 20070216, end: 20070605

REACTIONS (4)
  - CEREBRAL ISCHAEMIA [None]
  - MONOPARESIS [None]
  - MOVEMENT DISORDER [None]
  - PAIN IN EXTREMITY [None]
